FAERS Safety Report 6982839-1 (Version None)
Quarter: 2010Q3

REPORT INFORMATION
  Report Type: 
  Country: None (occurrence: None)
  Receive Date: 20100914
  Receipt Date: 20100414
  Transmission Date: 20110219
  Serious: No
  Sender: FDA-Public Use
  Company Number: US-PFIZER INC-2010033259

PATIENT
  Sex: Female

DRUGS (3)
  1. LYRICA [Suspect]
     Indication: FIBROMYALGIA
     Dosage: 50 MG, DAILY
     Route: 048
     Dates: start: 20090101
  2. NADOLOL [Concomitant]
     Dosage: UNK
  3. EVISTA [Concomitant]
     Dosage: UNK

REACTIONS (3)
  - BACK DISORDER [None]
  - FIBROMYALGIA [None]
  - WEIGHT INCREASED [None]
